FAERS Safety Report 7023945-5 (Version None)
Quarter: 2010Q3

REPORT INFORMATION
  Report Type: 
  Country: None (occurrence: None)
  Receive Date: 20100920
  Receipt Date: 20100917
  Transmission Date: 20110219
  Serious: Yes (Other)
  Sender: FDA-Public Use
  Company Number: TRP_07270_2010

PATIENT
  Sex: Female
  Weight: 98.8842 kg

DRUGS (5)
  1. INFERGEN [Suspect]
     Indication: HEPATITIS C
     Dosage: 15 UG QD SUBCUTANEOUS
     Route: 058
     Dates: start: 20100812
  2. RIBAVIRIN [Suspect]
     Indication: HEPATITIS C
     Dosage: 600 MG BID ORAL
     Route: 048
     Dates: start: 20100812
  3. ONGLYZA [Concomitant]
  4. WELCHOL [Concomitant]
  5. PLAVIX [Concomitant]

REACTIONS (5)
  - DECREASED APPETITE [None]
  - DEPRESSION [None]
  - HEADACHE [None]
  - MALAISE [None]
  - NAUSEA [None]
